FAERS Safety Report 21968216 (Version 1)
Quarter: 2023Q1

REPORT INFORMATION
  Report Type: Spontaneous
  Country: US (occurrence: US)
  Receive Date: 20230208
  Receipt Date: 20230208
  Transmission Date: 20230418
  Serious: No
  Sender: FDA-Public Use
  Company Number: US-INCYTE CORPORATION-2023IN001203

PATIENT

DRUGS (2)
  1. JAKAFI [Suspect]
     Active Substance: RUXOLITINIB
     Indication: Myelofibrosis
     Dosage: 10 MILLIGRAM, BID
     Route: 048
     Dates: start: 20220413
  2. JAKAFI [Suspect]
     Active Substance: RUXOLITINIB
     Dosage: DECREASED TO ONE TABLET ONCE DAILY
     Route: 065

REACTIONS (8)
  - Asthenia [Unknown]
  - Fall [Unknown]
  - Muscular weakness [Unknown]
  - Pain [Unknown]
  - Blood potassium decreased [Unknown]
  - Malnutrition [Unknown]
  - Depression [Unknown]
  - Haemoglobin decreased [Unknown]
